FAERS Safety Report 5625504-5 (Version None)
Quarter: 2008Q1

REPORT INFORMATION
  Report Type: 
  Country: None (occurrence: None)
  Receive Date: 20080211
  Receipt Date: 20080131
  Transmission Date: 20080703
  Serious: Yes (Other)
  Sender: FDA-Public Use
  Company Number: 2008AP000348

PATIENT
  Age: 33 Year
  Sex: Female

DRUGS (4)
  1. PAROXETINE HCL [Suspect]
     Dosage: 20 MG; PO;QD; 10 MG; PO; QD
     Route: 048
     Dates: start: 19960702
  2. PAROXETINE HCL [Suspect]
     Dosage: 20 MG; PO;QD; 10 MG; PO; QD
     Route: 048
     Dates: start: 19960702
  3. PAROXETINE HCL [Suspect]
     Dosage: 20 MG; PO;QD; 10 MG; PO; QD
     Route: 048
     Dates: start: 20000901
  4. DIAZEPAM [Concomitant]

REACTIONS (13)
  - ANXIETY [None]
  - APATHY [None]
  - CRYING [None]
  - DECREASED APPETITE [None]
  - DEPRESSED MOOD [None]
  - DISTURBANCE IN ATTENTION [None]
  - DIZZINESS [None]
  - DRUG WITHDRAWAL SYNDROME [None]
  - HYPERSOMNIA [None]
  - MUSCLE FATIGUE [None]
  - NAUSEA [None]
  - SUICIDAL IDEATION [None]
  - VOMITING [None]
